FAERS Safety Report 22177747 (Version 3)
Quarter: 2024Q1

REPORT INFORMATION
  Report Type: Report from Study
  Country: US (occurrence: US)
  Receive Date: 20230405
  Receipt Date: 20240321
  Transmission Date: 20240410
  Serious: No
  Sender: FDA-Public Use
  Company Number: US-ABBVIE-4715817

PATIENT
  Sex: Female

DRUGS (61)
  1. VENCLEXTA [Suspect]
     Active Substance: VENETOCLAX
     Indication: Myelodysplastic syndrome
     Route: 048
     Dates: start: 2023
  2. VENCLEXTA [Suspect]
     Active Substance: VENETOCLAX
     Indication: Myelodysplastic syndrome
     Route: 048
     Dates: start: 2023, end: 2023
  3. VENCLEXTA [Suspect]
     Active Substance: VENETOCLAX
     Indication: Myelodysplastic syndrome
     Route: 048
     Dates: start: 20240207, end: 20240221
  4. VENCLEXTA [Suspect]
     Active Substance: VENETOCLAX
     Indication: Myelodysplastic syndrome
     Route: 048
     Dates: start: 20230329
  5. DEFINITY [Concomitant]
     Active Substance: PERFLUTREN
     Indication: Product used for unknown indication
     Dosage: IN 0.9 % NACL INJ
     Route: 042
     Dates: start: 20230328
  6. INSULIN LISPRO [Concomitant]
     Active Substance: INSULIN LISPRO
     Indication: Product used for unknown indication
     Dosage: TIME INTERVAL: 0.33333333 DAYS: INJECTION 0-8 UNITS AND INJECTION 0-4 UNITS
     Route: 058
     Dates: start: 20230328
  7. DEXTROSE [Concomitant]
     Active Substance: DEXTROSE\DEXTROSE MONOHYDRATE
     Indication: Product used for unknown indication
     Dosage: CHEWABLE
     Route: 048
     Dates: start: 20230328
  8. LIPITOR [Concomitant]
     Active Substance: ATORVASTATIN CALCIUM
     Indication: Product used for unknown indication
     Route: 048
     Dates: start: 20230326
  9. ROCEPHIN [Concomitant]
     Active Substance: CEFTRIAXONE SODIUM
     Indication: Product used for unknown indication
     Dosage: 1 G / 50 ML IVPB 1 G
     Route: 042
     Dates: start: 20230329, end: 20230402
  10. MAGNESIUM SULFATE [Concomitant]
     Active Substance: MAGNESIUM SULFATE\MAGNESIUM SULFATE HEPTAHYDRATE
     Indication: Product used for unknown indication
     Dosage: IVPB 2 G / 50 ML
     Route: 042
     Dates: start: 20230302, end: 20230302
  11. MAGNESIUM SULFATE [Concomitant]
     Active Substance: MAGNESIUM SULFATE\MAGNESIUM SULFATE HEPTAHYDRATE
     Indication: Product used for unknown indication
     Dosage: IVPB 2 G / 50 ML
     Route: 042
     Dates: start: 20230227, end: 20230228
  12. MAGNESIUM SULFATE [Concomitant]
     Active Substance: MAGNESIUM SULFATE\MAGNESIUM SULFATE HEPTAHYDRATE
     Indication: Product used for unknown indication
     Dosage: IVPB 2 G / 50 ML
     Route: 042
     Dates: start: 20230327, end: 20230327
  13. MAGNESIUM SULFATE [Concomitant]
     Active Substance: MAGNESIUM SULFATE\MAGNESIUM SULFATE HEPTAHYDRATE
     Indication: Product used for unknown indication
     Dosage: IVPB 2 G / 50 ML
     Route: 042
     Dates: start: 20230328, end: 20230329
  14. MAGNESIUM SULFATE [Concomitant]
     Active Substance: MAGNESIUM SULFATE\MAGNESIUM SULFATE HEPTAHYDRATE
     Indication: Product used for unknown indication
     Route: 042
  15. LASIX [Concomitant]
     Active Substance: FUROSEMIDE
     Indication: Product used for unknown indication
     Route: 042
     Dates: start: 20230228, end: 20230228
  16. LASIX [Concomitant]
     Active Substance: FUROSEMIDE
     Indication: Product used for unknown indication
     Route: 042
     Dates: start: 20230327, end: 20230327
  17. LASIX [Concomitant]
     Active Substance: FUROSEMIDE
     Indication: Product used for unknown indication
     Route: 048
     Dates: start: 20230324, end: 20230423
  18. LASIX [Concomitant]
     Active Substance: FUROSEMIDE
     Indication: Product used for unknown indication
     Route: 042
     Dates: start: 20230302, end: 20230302
  19. LASIX [Concomitant]
     Active Substance: FUROSEMIDE
     Indication: Product used for unknown indication
     Route: 042
     Dates: start: 20230329, end: 20230329
  20. LASIX [Concomitant]
     Active Substance: FUROSEMIDE
     Indication: Product used for unknown indication
     Route: 042
     Dates: start: 20230328, end: 20230328
  21. LASIX [Concomitant]
     Active Substance: FUROSEMIDE
     Indication: Product used for unknown indication
     Route: 042
     Dates: start: 20230227, end: 20230227
  22. LASIX [Concomitant]
     Active Substance: FUROSEMIDE
     Indication: Product used for unknown indication
     Route: 042
     Dates: start: 20230327, end: 20230327
  23. LASIX [Concomitant]
     Active Substance: FUROSEMIDE
     Indication: Product used for unknown indication
     Route: 048
     Dates: start: 20230303, end: 20230303
  24. LASIX [Concomitant]
     Active Substance: FUROSEMIDE
     Indication: Product used for unknown indication
     Route: 042
     Dates: start: 20230228, end: 20230228
  25. LASIX [Concomitant]
     Active Substance: FUROSEMIDE
     Indication: Product used for unknown indication
     Route: 042
     Dates: start: 20230301, end: 20230301
  26. LASIX [Concomitant]
     Active Substance: FUROSEMIDE
     Indication: Product used for unknown indication
     Route: 042
     Dates: start: 20230326, end: 20230326
  27. LACRI-LUBE [Concomitant]
     Indication: Product used for unknown indication
     Route: 047
     Dates: start: 20230326
  28. SODIUM CHLORIDE [Concomitant]
     Active Substance: SODIUM CHLORIDE
     Indication: Product used for unknown indication
     Dosage: FLUSH 3 ML, AS NEEDED
     Route: 065
     Dates: start: 20230326
  29. DEXTROSE [Concomitant]
     Active Substance: DEXTROSE\DEXTROSE MONOHYDRATE
     Indication: Product used for unknown indication
     Dosage: 10% (D10W) 10 % BOLUS 250 ML
     Route: 042
     Dates: start: 20230328
  30. DEXTROSE [Concomitant]
     Active Substance: DEXTROSE\DEXTROSE MONOHYDRATE
     Indication: Product used for unknown indication
     Route: 042
     Dates: start: 20230328
  31. DILAUDID [Concomitant]
     Active Substance: HYDROMORPHONE HYDROCHLORIDE
     Indication: Product used for unknown indication
     Dosage: 0.5 MG / 0.5 ML 0.2 MG INJECTION 0.2 MG (COMPLETED )
     Route: 042
     Dates: start: 20230228, end: 20230228
  32. TYLENOL [Concomitant]
     Active Substance: ACETAMINOPHEN
     Indication: Product used for unknown indication
     Route: 048
     Dates: start: 20230315, end: 20230315
  33. GLUCOPHAGE [Concomitant]
     Active Substance: METFORMIN HYDROCHLORIDE
     Indication: Product used for unknown indication
     Dosage: TAKE 1 TAB BY MOUTH EVERY MORNING AND 1/2 TABLET BY MOUTH EVERY EVENING
     Route: 048
  34. ZOSYN [Concomitant]
     Active Substance: PIPERACILLIN SODIUM\TAZOBACTAM SODIUM
     Indication: Product used for unknown indication
     Dosage: 4.5 G / 100 ML IVPB 4.5 G
     Route: 042
     Dates: start: 20230326, end: 20230326
  35. K DUR [Concomitant]
     Indication: Product used for unknown indication
     Dosage: CR TABLET 40 MEQ
     Route: 048
     Dates: start: 20230327, end: 20230327
  36. K DUR [Concomitant]
     Indication: Product used for unknown indication
     Dosage: CR TABLET 20 MEQ
     Route: 048
     Dates: start: 20230327, end: 20230327
  37. K DUR [Concomitant]
     Indication: Product used for unknown indication
     Dosage: CR TABLET 20 MEQ
     Route: 048
     Dates: start: 20230228, end: 20230228
  38. K DUR [Concomitant]
     Indication: Product used for unknown indication
     Dosage: CR TABLET 40 MEQ
     Route: 048
     Dates: start: 20230328, end: 20230328
  39. K DUR [Concomitant]
     Indication: Product used for unknown indication
     Dosage: CR TABLET 40 MEQ
     Route: 048
     Dates: start: 20230329, end: 20230329
  40. K DUR [Concomitant]
     Indication: Product used for unknown indication
     Dosage: CR TABLET 40 MEQ
     Route: 048
     Dates: start: 20230326, end: 20230326
  41. VIDAZA [Concomitant]
     Active Substance: AZACITIDINE
     Indication: Product used for unknown indication
     Dosage: CHEMO SYRINGE, 75 MG/M2 X 1.48 M2
     Route: 058
     Dates: start: 20240306, end: 20240306
  42. VIDAZA [Concomitant]
     Active Substance: AZACITIDINE
     Indication: Product used for unknown indication
     Dosage: CHEMO SYRINGE, 75 MG/M2 X 1.48 M2
     Route: 058
     Dates: start: 20240308, end: 20240308
  43. VIDAZA [Concomitant]
     Active Substance: AZACITIDINE
     Indication: Product used for unknown indication
     Dosage: CHEMO SYRINGE, 75 MG/M2 X 1.48 M2
     Route: 058
     Dates: start: 20240304, end: 20240304
  44. VIDAZA [Concomitant]
     Active Substance: AZACITIDINE
     Indication: Product used for unknown indication
     Dosage: CHEMO SYRINGE, 75 MG/M2 X 1.48 M2
     Route: 058
     Dates: start: 20240305, end: 20240305
  45. VIDAZA [Concomitant]
     Active Substance: AZACITIDINE
     Indication: Product used for unknown indication
     Dosage: 75 MG/M2 X 1.48 M2
     Dates: start: 20240307, end: 20240307
  46. POTASSIUM CHLORIDE [Concomitant]
     Active Substance: POTASSIUM CHLORIDE
     Indication: Product used for unknown indication
     Dosage: IN WATER 10 MEQ/ 100 ML IVPB 10 MEQ
     Route: 042
     Dates: start: 20230227, end: 20230228
  47. POTASSIUM CHLORIDE [Concomitant]
     Active Substance: POTASSIUM CHLORIDE
     Indication: Product used for unknown indication
     Dosage: IN WATER 10 MEQ/ 100 ML IVPB 10 MEQ
     Route: 042
     Dates: start: 20230326, end: 20230326
  48. POTASSIUM CHLORIDE [Concomitant]
     Active Substance: POTASSIUM CHLORIDE
     Indication: Product used for unknown indication
     Dosage: IN WATER 10 MEQ/ 100 ML IVPB 10 MEQ
     Route: 042
     Dates: start: 20230228, end: 20230301
  49. ZITHROMAX [Concomitant]
     Active Substance: AZITHROMYCIN DIHYDRATE
     Indication: Product used for unknown indication
     Route: 048
     Dates: start: 20230329, end: 20230401
  50. NORVASC [Concomitant]
     Active Substance: AMLODIPINE BESYLATE
     Indication: Product used for unknown indication
     Route: 048
     Dates: start: 20230326
  51. ZOFRAN [Concomitant]
     Active Substance: ONDANSETRON HYDROCHLORIDE
     Indication: Product used for unknown indication
     Route: 048
     Dates: start: 20240306, end: 20240307
  52. ZOFRAN [Concomitant]
     Active Substance: ONDANSETRON HYDROCHLORIDE
     Indication: Product used for unknown indication
     Dosage: ONCE
     Route: 048
     Dates: start: 20240306, end: 20240306
  53. ZOFRAN [Concomitant]
     Active Substance: ONDANSETRON HYDROCHLORIDE
     Indication: Product used for unknown indication
     Dosage: ONCE
     Route: 048
     Dates: start: 20240308, end: 20240308
  54. ZOFRAN [Concomitant]
     Active Substance: ONDANSETRON HYDROCHLORIDE
     Indication: Product used for unknown indication
     Dosage: ONCE
     Route: 048
     Dates: start: 20240304, end: 20240304
  55. ZOFRAN [Concomitant]
     Active Substance: ONDANSETRON HYDROCHLORIDE
     Indication: Product used for unknown indication
     Dosage: ONCE
     Route: 048
     Dates: start: 20240304, end: 20240305
  56. MELATONIN [Concomitant]
     Active Substance: MELATONIN
     Indication: Product used for unknown indication
     Route: 048
     Dates: start: 20230328
  57. OMNIPAQUE [Concomitant]
     Active Substance: IOHEXOL
     Indication: Product used for unknown indication
     Dosage: 350 MG ,IODINE / ML INJECTION 100 ML
     Route: 042
     Dates: start: 20230326, end: 20230326
  58. OMNIPAQUE [Concomitant]
     Active Substance: IOHEXOL
     Indication: Product used for unknown indication
     Dosage: 350 MG ,IODINE / ML INJECTION 100 ML
     Route: 042
     Dates: start: 20230227, end: 20230227
  59. LIORESAL [Concomitant]
     Active Substance: BACLOFEN
     Indication: Product used for unknown indication
     Route: 048
     Dates: start: 20230424
  60. TENORMIN [Concomitant]
     Active Substance: ATENOLOL
     Indication: Product used for unknown indication
     Route: 048
     Dates: start: 20230326
  61. TRUEPLUS GLUCOSE [Concomitant]
     Indication: Product used for unknown indication
     Route: 048
     Dates: start: 20230328

REACTIONS (1)
  - Off label use [Not Recovered/Not Resolved]
